FAERS Safety Report 12078606 (Version 2)
Quarter: 2016Q3

REPORT INFORMATION
  Report Type: Report from Study
  Country: US (occurrence: US)
  Receive Date: 20160216
  Receipt Date: 20160817
  Transmission Date: 20161109
  Serious: Yes (Hospitalization, Other)
  Sender: FDA-Public Use
  Company Number: US-AMGEN-USASP2016016585

PATIENT
  Age: 58 Year
  Sex: Female

DRUGS (1)
  1. ENBREL [Suspect]
     Active Substance: ETANERCEPT
     Indication: ANKYLOSING SPONDYLITIS
     Dosage: 50 MG, WEEKLY
     Route: 065
     Dates: start: 201510

REACTIONS (5)
  - Sinusitis [Unknown]
  - Fatigue [Unknown]
  - Ear infection [Unknown]
  - Atrial flutter [Unknown]
  - Bronchitis [Unknown]

NARRATIVE: CASE EVENT DATE: 20160206
